FAERS Safety Report 20738771 (Version 2)
Quarter: 2022Q2

REPORT INFORMATION
  Report Type: Report from Study
  Country: NG (occurrence: None)
  Receive Date: 20220422
  Receipt Date: 20220425
  Transmission Date: 20220721
  Serious: Yes (Other)
  Sender: FDA-Public Use
  Company Number: NG-ROCHE-3075941

PATIENT
  Sex: Female

DRUGS (1)
  1. AVASTIN [Suspect]
     Active Substance: BEVACIZUMAB
     Indication: Colorectal cancer
     Route: 042

REACTIONS (2)
  - Asthenia [Unknown]
  - Neoplasm [Unknown]
